FAERS Safety Report 14666322 (Version 1)
Quarter: 2018Q1

REPORT INFORMATION
  Report Type: Spontaneous
  Country: UM (occurrence: UM)
  Receive Date: 20180320
  Receipt Date: 20180320
  Transmission Date: 20180509
  Serious: Yes (Disabling)
  Sender: FDA-Public Use
  Company Number: None

PATIENT
  Age: 38 Year
  Sex: Male
  Weight: 85.5 kg

DRUGS (5)
  1. VITAMIN D [Concomitant]
     Active Substance: CHOLECALCIFEROL
  2. CIPROFLAXOCIN [Suspect]
     Active Substance: CIPROFLOXACIN HYDROCHLORIDE
     Indication: DIVERTICULITIS
     Dates: start: 20180216, end: 20180311
  3. MONTELUKAST SODIUM. [Concomitant]
     Active Substance: MONTELUKAST SODIUM
  4. VITANON C [Concomitant]
  5. MENS MULTI-VITAMIN [Concomitant]

REACTIONS (3)
  - Penile discharge [None]
  - Middle insomnia [None]
  - Arthralgia [None]

NARRATIVE: CASE EVENT DATE: 20180306
